FAERS Safety Report 8173259-5 (Version None)
Quarter: 2012Q1

REPORT INFORMATION
  Report Type: 
  Country: None (occurrence: None)
  Receive Date: 20120229
  Receipt Date: 20120221
  Transmission Date: 20120608
  Serious: Yes (Other)
  Sender: FDA-Public Use
  Company Number: CA-JNJFOC-20110910515

PATIENT
  Sex: Female
  Weight: 75 kg

DRUGS (3)
  1. MULTI-VITAMINS [Concomitant]
     Route: 065
  2. REMICADE [Suspect]
     Indication: COLITIS ULCERATIVE
     Route: 042
     Dates: start: 20101029
  3. IMURAN [Concomitant]
     Route: 065

REACTIONS (4)
  - DYSPNOEA [None]
  - CHEST PAIN [None]
  - BRONCHITIS [None]
  - PNEUMONIA [None]
